FAERS Safety Report 22203669 (Version 1)
Quarter: 2023Q2

REPORT INFORMATION
  Report Type: Report from Study
  Country: US (occurrence: US)
  Receive Date: 20230412
  Receipt Date: 20230412
  Transmission Date: 20230721
  Serious: Yes (Other)
  Sender: FDA-Public Use
  Company Number: US-002147023-NVSC2023US082909

PATIENT
  Sex: Male
  Weight: 104.33 kg

DRUGS (4)
  1. COSENTYX [Suspect]
     Active Substance: SECUKINUMAB
     Indication: Psoriasis
     Dosage: UNK
     Route: 065
  2. COSENTYX [Suspect]
     Active Substance: SECUKINUMAB
     Indication: Psoriatic arthropathy
  3. CLOBETASOL [Suspect]
     Active Substance: CLOBETASOL
     Indication: Psoriasis
     Dosage: 1 DOSAGE FORM, BID (PRN FLARES)
     Route: 060
  4. CLOBETASOL [Suspect]
     Active Substance: CLOBETASOL
     Indication: Psoriatic arthropathy

REACTIONS (14)
  - Psoriatic arthropathy [Unknown]
  - Arthropathy [Unknown]
  - Blood triglycerides increased [Unknown]
  - High density lipoprotein increased [Unknown]
  - Low density lipoprotein increased [Unknown]
  - Hepatitis B antibody abnormal [Unknown]
  - Psoriasis [Unknown]
  - Skin exfoliation [Unknown]
  - Papule [Unknown]
  - Skin papilloma [Unknown]
  - Pruritus [Unknown]
  - Skin lesion [Unknown]
  - Therapeutic product effect incomplete [Unknown]
  - Product use in unapproved indication [Unknown]
